FAERS Safety Report 17469195 (Version 2)
Quarter: 2022Q2

REPORT INFORMATION
  Report Type: Spontaneous
  Country: US (occurrence: US)
  Receive Date: 20200227
  Receipt Date: 20220418
  Transmission Date: 20220721
  Serious: No
  Sender: FDA-Public Use
  Company Number: US-SA-2020SA046498

PATIENT
  Age: 50 Year
  Sex: Female

DRUGS (3)
  1. TERIFLUNOMIDE [Suspect]
     Active Substance: TERIFLUNOMIDE
     Indication: Multiple sclerosis
     Dosage: 14 MG, QD
     Route: 048
     Dates: start: 202002, end: 2022
  2. CLONAZEPAM [Concomitant]
     Active Substance: CLONAZEPAM
  3. VITAMINS [Concomitant]
     Active Substance: VITAMINS

REACTIONS (6)
  - Gait disturbance [Unknown]
  - Visual impairment [Unknown]
  - Insomnia [Unknown]
  - Depression [Unknown]
  - Drug ineffective [Unknown]
  - Therapy cessation [Unknown]
